FAERS Safety Report 12413914 (Version 2)
Quarter: 2016Q2

REPORT INFORMATION
  Report Type: Spontaneous
  Country: BE (occurrence: BE)
  Receive Date: 20160527
  Receipt Date: 20160629
  Transmission Date: 20160815
  Serious: Yes (Hospitalization)
  Sender: FDA-Public Use
  Company Number: BE-TAKEDA-2016TUS008783

PATIENT
  Sex: Male
  Weight: 52 kg

DRUGS (4)
  1. NICOTIBINE [Concomitant]
     Active Substance: ISONIAZID
     Dosage: UNK
     Dates: start: 201602
  2. PYRIDOXINE [Concomitant]
     Active Substance: PYRIDOXINE
     Dosage: UNK
     Dates: start: 201602
  3. RIFADIN [Concomitant]
     Active Substance: RIFAMPIN
     Dosage: UNK
     Dates: start: 201602
  4. ENTYVIO [Suspect]
     Active Substance: VEDOLIZUMAB
     Indication: CROHN^S DISEASE
     Dosage: 300 MG, UNK
     Route: 042
     Dates: start: 20160225, end: 20160310

REACTIONS (9)
  - Tremor [Not Recovered/Not Resolved]
  - Paraesthesia [Unknown]
  - Discomfort [Unknown]
  - Fatigue [Unknown]
  - Malaise [Unknown]
  - Palpitations [Not Recovered/Not Resolved]
  - Presyncope [Not Recovered/Not Resolved]
  - Hypoaesthesia [Not Recovered/Not Resolved]
  - Chest pain [Unknown]

NARRATIVE: CASE EVENT DATE: 20160401
